FAERS Safety Report 7232404-6 (Version None)
Quarter: 2011Q1

REPORT INFORMATION
  Report Type: 
  Country: None (occurrence: None)
  Receive Date: 20110105
  Receipt Date: 20101220
  Transmission Date: 20110831
  Serious: Yes (Other)
  Sender: FDA-Public Use
  Company Number: 2010P1003488

PATIENT
  Age: 70 Year
  Sex: Female
  Weight: 96.1626 kg

DRUGS (14)
  1. CRESTOR [Concomitant]
  2. FERROUS SULFATE TAB [Concomitant]
  3. TRAMADOL HCL [Concomitant]
  4. POTASSIUM CHLORIDE ER [Concomitant]
  5. COLCHICINE [Concomitant]
  6. BUSPIRONE HCL [Concomitant]
  7. ISOSORBIDE M ER [Concomitant]
  8. NATEGLINIDE [Concomitant]
  9. CARVEDILOL [Concomitant]
  10. LORATADINE [Concomitant]
  11. TEKTURNA [Concomitant]
  12. FUROSEMIDE [Concomitant]
  13. LOSARTAN POTASSIUM [Concomitant]
  14. WARFARIN SODIUM [Suspect]
     Indication: COAGULOPATHY
     Dosage: 4 MG; BID; PO
     Route: 048
     Dates: start: 20100801

REACTIONS (2)
  - TRANSIENT ISCHAEMIC ATTACK [None]
  - FATIGUE [None]
